FAERS Safety Report 9714855 (Version 2)
Quarter: 2013Q4

REPORT INFORMATION
  Report Type: Report from Study
  Country: AU (occurrence: AU)
  Receive Date: 20131126
  Receipt Date: 20131126
  Transmission Date: 20140711
  Serious: Yes (Hospitalization)
  Sender: FDA-Public Use
  Company Number: AU-EXELIXIS-XL18413002702

PATIENT
  Age: 77 Year
  Sex: Male
  Weight: 80 kg

DRUGS (10)
  1. XL184 [Suspect]
     Indication: PROSTATE CANCER
     Dosage: 60 MG, QD
     Route: 048
     Dates: start: 20121127, end: 20130402
  2. XL184 [Suspect]
     Dosage: 40 MG, QD
     Route: 048
     Dates: start: 20130405, end: 20130512
  3. XL184 [Suspect]
     Indication: PROSTATE CANCER
     Dosage: 5 MG, BID
     Route: 048
     Dates: start: 20121127, end: 20130403
  4. XL184 [Suspect]
     Dosage: 5 MG, BID
     Route: 048
     Dates: start: 20130405, end: 20130512
  5. MAXOLON [Concomitant]
  6. CARTIA [Concomitant]
  7. PREDNISOLONE [Concomitant]
  8. MOVICOL [Concomitant]
  9. ACIMAX [Concomitant]
  10. PANADOL [Concomitant]

REACTIONS (3)
  - Confusional state [Not Recovered/Not Resolved]
  - Hyponatraemia [Recovered/Resolved]
  - Urinary tract infection [Recovered/Resolved]
